FAERS Safety Report 8923457 (Version 1)
Quarter: 2012Q4

REPORT INFORMATION
  Report Type: 
  Country: US (occurrence: US)
  Receive Date: 20121124
  Receipt Date: 20121124
  Transmission Date: 20130627
  Serious: Yes (Other)
  Sender: FDA-Public Use
  Company Number: US-BAYER-2012-120077

PATIENT
  Age: 57 Year
  Sex: Male
  Weight: 102.95 kg

DRUGS (1)
  1. BAYER GENUINE ASPIRIN ORIGINAL STRENGTH [Suspect]
     Dosage: 1 DF, QD
     Route: 048
     Dates: start: 201208

REACTIONS (2)
  - Haematochezia [Unknown]
  - Incorrect drug administration duration [None]
